FAERS Safety Report 6630943-X (Version None)
Quarter: 2010Q1

REPORT INFORMATION
  Report Type: 
  Country: None (occurrence: None)
  Receive Date: 20100309
  Receipt Date: 20100305
  Transmission Date: 20100710
  Serious: Yes (Death)
  Sender: FDA-Public Use
  Company Number: ALL1-2010-01186

PATIENT
  Age: 74 Year
  Sex: Male

DRUGS (1)
  1. FOSRENOL [Suspect]
     Indication: HYPERPHOSPHATAEMIA
     Dosage: TWO 1000MG.WITH MEALS AND ONE WITH SNACKS, ORAL
     Route: 048

REACTIONS (1)
  - DEATH [None]
